FAERS Safety Report 4305475-4 (Version None)
Quarter: 2004Q1

REPORT INFORMATION
  Report Type: 
  Country: None (occurrence: None)
  Receive Date: 20040226
  Receipt Date: 20030728
  Transmission Date: 20041129
  Serious: Yes (Other)
  Sender: FDA-Public Use
  Company Number: US-BRISTOL-MYERS SQUIBB COMPANY-12336426

PATIENT
  Age: 52 Year
  Sex: Female

DRUGS (3)
  1. ABILIFY [Suspect]
     Route: 048
  2. EFFEXOR XR [Suspect]
     Indication: DEPRESSION
     Route: 048
  3. ZYPREXA [Suspect]
     Route: 048

REACTIONS (2)
  - NO ADVERSE EFFECT [None]
  - OVERDOSE [None]
